FAERS Safety Report 8109997-X (Version None)
Quarter: 2012Q1

REPORT INFORMATION
  Report Type: 
  Country: None (occurrence: None)
  Receive Date: 20120202
  Receipt Date: 20120123
  Transmission Date: 20120608
  Serious: No
  Sender: FDA-Public Use
  Company Number: US-AMGEN-USASP2011050045

PATIENT
  Age: 82 Year
  Sex: Female

DRUGS (5)
  1. MUCINEX D [Concomitant]
     Dosage: UNK
     Dates: start: 20090901
  2. ENBREL [Suspect]
     Indication: RHEUMATOID ARTHRITIS
     Dosage: 25 MG, ONCE IN 5 DAYS
     Route: 058
     Dates: start: 20050422, end: 20110925
  3. PLAQUENIL [Concomitant]
     Dosage: UNK
  4. METHOTREXATE [Concomitant]
     Dosage: UNK
  5. MOBIC [Concomitant]
     Dosage: UNK

REACTIONS (3)
  - NASOPHARYNGITIS [None]
  - PRURITUS [None]
  - RASH [None]
